FAERS Safety Report 6402023-X (Version None)
Quarter: 2009Q4

REPORT INFORMATION
  Report Type: 
  Country: None (occurrence: None)
  Receive Date: 20091015
  Receipt Date: 20091005
  Transmission Date: 20100525
  Serious: Yes (Other)
  Sender: FDA-Public Use
  Company Number: US-JNJFOC-20091002203

PATIENT
  Age: 85 Year
  Sex: Female
  Weight: 60.78 kg

DRUGS (10)
  1. IMODIUM A-D EZ CHEWS [Suspect]
     Route: 048
  2. IMODIUM A-D EZ CHEWS [Suspect]
     Indication: DIARRHOEA
     Route: 048
  3. CARAFATE [Suspect]
     Indication: DRUG USE FOR UNKNOWN INDICATION
     Route: 065
  4. LOPRESSOR [Concomitant]
     Indication: BLOOD PRESSURE
     Dosage: 100+25 MG/2+QTR
     Route: 065
  5. DYAZIDE [Concomitant]
     Indication: FLUID RETENTION
     Route: 065
  6. LANOXIN [Concomitant]
     Indication: CARDIAC DISORDER
     Dosage: 1/2 PILL
     Route: 065
  7. ASPIRIN [Concomitant]
     Indication: CARDIAC DISORDER
     Route: 065
  8. ATIVAN [Concomitant]
     Indication: FEELING OF RELAXATION
     Dosage: 5 MG/1/2, SINCE 2 AND HALF YEARS
     Route: 065
  9. GAS-X MAX STRENGTH [Concomitant]
     Indication: PROPHYLAXIS
     Dosage: LENGTH: MAY BE ABOUT A YEAR
     Route: 065
  10. PEPTO BISMOL [Concomitant]
     Indication: ABDOMINAL PAIN UPPER
     Dosage: TAKES A GULP SINCE YEARS
     Route: 065

REACTIONS (3)
  - ABDOMINAL DISCOMFORT [None]
  - CONSTIPATION [None]
  - HAEMORRHAGE [None]
